FAERS Safety Report 13772182 (Version 1)
Quarter: 2017Q3

REPORT INFORMATION
  Report Type: Report from Study
  Country: US (occurrence: US)
  Receive Date: 20170720
  Receipt Date: 20170720
  Transmission Date: 20171127
  Serious: Yes (Other)
  Sender: FDA-Public Use
  Company Number: US-JNJFOC-20170625161

PATIENT
  Age: 74 Year
  Sex: Female

DRUGS (2)
  1. IMBRUVICA [Suspect]
     Active Substance: IBRUTINIB
     Indication: HAIRY CELL LEUKAEMIA
     Dosage: 420 MG, QD
     Route: 048
     Dates: start: 20170206, end: 20170711
  2. IMBRUVICA [Suspect]
     Active Substance: IBRUTINIB
     Indication: HAIRY CELL LEUKAEMIA
     Dosage: 420 MG, QD
     Route: 048
     Dates: start: 20170527

REACTIONS (4)
  - Peptic ulcer [Unknown]
  - Off label use [Unknown]
  - Product use in unapproved indication [Unknown]
  - Dysgeusia [Not Recovered/Not Resolved]

NARRATIVE: CASE EVENT DATE: 20170206
